FAERS Safety Report 6690763-7 (Version None)
Quarter: 2010Q2

REPORT INFORMATION
  Report Type: 
  Country: None (occurrence: None)
  Receive Date: 20100421
  Receipt Date: 20100409
  Transmission Date: 20101027
  Serious: Yes (Hospitalization, Other)
  Sender: FDA-Public Use
  Company Number: US-PFIZER INC-2010040826

PATIENT
  Sex: Female
  Weight: 88.43 kg

DRUGS (20)
  1. LYRICA [Suspect]
     Indication: FIBROMYALGIA
     Dosage: 150 MG, 2X/DAY
     Route: 048
     Dates: start: 20070101
  2. LYRICA [Suspect]
     Indication: PANIC ATTACK
  3. NEURONTIN [Suspect]
     Indication: FIBROMYALGIA
     Dosage: UNK
     Route: 048
  4. LEXAPRO [Concomitant]
     Indication: PANIC DISORDER
     Dosage: 20 MG, UNK
     Route: 048
  5. LEXAPRO [Concomitant]
     Indication: ANXIETY DISORDER
  6. LEXAPRO [Concomitant]
     Indication: DEPRESSION
  7. CYMBALTA [Concomitant]
     Indication: PANIC DISORDER
     Dosage: 60 MG, UNK
     Route: 048
  8. CYMBALTA [Concomitant]
     Indication: ANXIETY DISORDER
  9. CYMBALTA [Concomitant]
     Indication: DEPRESSION
  10. XANAX [Concomitant]
     Indication: PANIC DISORDER
     Dosage: 2 MG, 3X/DAY
     Route: 048
  11. XANAX [Concomitant]
     Indication: ANXIETY DISORDER
  12. XANAX [Concomitant]
     Indication: DEPRESSION
  13. OXYCONTIN [Concomitant]
     Indication: INTERVERTEBRAL DISC DEGENERATION
     Dosage: 100 MG, 1X/DAY
     Route: 048
  14. OXYCONTIN [Concomitant]
     Indication: TENDONITIS
  15. OXYCODONE [Concomitant]
     Indication: INTERVERTEBRAL DISC DEGENERATION
     Dosage: 5 MG, 3X/DAY
  16. OXYCODONE [Concomitant]
     Indication: TENDONITIS
  17. FIORICET [Concomitant]
     Indication: STRESS
     Dosage: 325 MG, UNK
     Route: 048
  18. FIORICET [Concomitant]
     Indication: HEADACHE
  19. ROBAXIN [Concomitant]
     Indication: MYALGIA
     Dosage: 4000 MG, DAILY
     Route: 048
  20. NEXIUM [Concomitant]
     Indication: GASTROOESOPHAGEAL REFLUX DISEASE
     Dosage: 40 MG, AS NEEDED
     Route: 048

REACTIONS (4)
  - NAUSEA [None]
  - OEDEMA PERIPHERAL [None]
  - PANIC ATTACK [None]
  - PARANOIA [None]
